FAERS Safety Report 19205174 (Version 1)
Quarter: 2021Q2

REPORT INFORMATION
  Report Type: Spontaneous
  Country: US (occurrence: US)
  Receive Date: 20210501
  Receipt Date: 20210501
  Transmission Date: 20210717
  Serious: Yes (Other)
  Sender: FDA-Public Use
  Company Number: None

PATIENT
  Age: 40 Year
  Sex: Male
  Weight: 72 kg

DRUGS (1)
  1. EARTH KRATOM ORGANIC RED MAENG DA [Suspect]
     Active Substance: HERBALS\MITRAGYNINE
     Indication: PAIN
     Dates: start: 20210125, end: 20210203

REACTIONS (2)
  - Diarrhoea [None]
  - Product contamination physical [None]

NARRATIVE: CASE EVENT DATE: 20210203
